FAERS Safety Report 6876600-6 (Version None)
Quarter: 2010Q3

REPORT INFORMATION
  Report Type: 
  Country: None (occurrence: None)
  Receive Date: 20100727
  Receipt Date: 20080612
  Transmission Date: 20110219
  Serious: Yes (Hospitalization, Other)
  Sender: FDA-Public Use
  Company Number: US-PFIZER INC-2008034568

PATIENT
  Sex: Male
  Weight: 70.3 kg

DRUGS (7)
  1. CHANTIX [Suspect]
     Indication: SMOKING CESSATION THERAPY
     Route: 048
     Dates: start: 20080328
  2. PREDNISONE [Concomitant]
  3. MONTELUKAST SODIUM [Concomitant]
  4. ADVAIR DISKUS 100/50 [Concomitant]
  5. SPIRIVA [Concomitant]
  6. RHINOCORT [Concomitant]
  7. XANAX [Concomitant]

REACTIONS (7)
  - AGITATION [None]
  - DYSPNOEA [None]
  - GAIT DISTURBANCE [None]
  - INAPPROPRIATE SCHEDULE OF DRUG ADMINISTRATION [None]
  - INSOMNIA [None]
  - LOSS OF CONSCIOUSNESS [None]
  - PANIC ATTACK [None]
